FAERS Safety Report 5041622-7 (Version None)
Quarter: 2006Q2

REPORT INFORMATION
  Report Type: 
  Country: None (occurrence: None)
  Receive Date: 20060628
  Receipt Date: 20060621
  Transmission Date: 20061013
  Serious: Yes (Hospitalization)
  Sender: FDA-Public Use
  Company Number: THQ2006A00419

PATIENT
  Age: 55 Year
  Sex: Female

DRUGS (7)
  1. ACTOS [Suspect]
     Indication: DIABETES MELLITUS
     Dosage: 30 MG (30 MG, 1 IN 1 D) PER ORAL
     Route: 048
     Dates: end: 20060218
  2. GLIPIZIDE [Concomitant]
  3. LOMIR (ISRADIPINE) [Concomitant]
  4. ASPIRIN [Concomitant]
  5. METFORMIN [Concomitant]
  6. REPAGLINIDE [Concomitant]
  7. ARTROX (GLUCOSAMINE HYDROCHLORIDE) [Concomitant]

REACTIONS (6)
  - BUNDLE BRANCH BLOCK LEFT [None]
  - CARDIOMEGALY [None]
  - CARDIOMYOPATHY [None]
  - COUGH [None]
  - EJECTION FRACTION DECREASED [None]
  - VENTRICULAR DYSFUNCTION [None]
